FAERS Safety Report 25873272 (Version 3)
Quarter: 2025Q4

REPORT INFORMATION
  Report Type: Spontaneous
  Country: US (occurrence: US)
  Receive Date: 20251002
  Receipt Date: 20251022
  Transmission Date: 20260118
  Serious: Yes (Other)
  Sender: PFIZER
  Company Number: US-PFIZER INC-PV202500116467

PATIENT
  Sex: Female

DRUGS (1)
  1. ESTRING [Suspect]
     Active Substance: ESTRADIOL
     Dosage: UNK
     Route: 067

REACTIONS (3)
  - Device defective [Unknown]
  - Vulvovaginal injury [Unknown]
  - Vulvovaginal discomfort [Unknown]
